FAERS Safety Report 20124178 (Version 2)
Quarter: 2022Q3

REPORT INFORMATION
  Report Type: Spontaneous
  Country: DE (occurrence: DE)
  Receive Date: 20211129
  Receipt Date: 20220713
  Transmission Date: 20221027
  Serious: Yes (Other)
  Sender: FDA-Public Use
  Company Number: DE-GSKCCFEMEA-Case-01360889_AE-52142

PATIENT

DRUGS (1)
  1. FLUTICASONE FUROATE\VILANTEROL TRIFENATATE [Suspect]
     Active Substance: FLUTICASONE FUROATE\VILANTEROL TRIFENATATE
     Indication: Product used for unknown indication
     Dosage: UNK, 184/22 ?G
     Route: 055
     Dates: start: 2020

REACTIONS (4)
  - Dementia [Unknown]
  - Dyspnoea [Unknown]
  - Coordination abnormal [Unknown]
  - Wrong technique in product usage process [Unknown]
